FAERS Safety Report 7349619-9 (Version None)
Quarter: 2011Q1

REPORT INFORMATION
  Report Type: 
  Country: None (occurrence: None)
  Receive Date: 20110314
  Receipt Date: 20110303
  Transmission Date: 20110831
  Serious: Yes (Other)
  Sender: FDA-Public Use
  Company Number: DE-ASTRAZENECA-2011SE11870

PATIENT
  Age: 0 Year
  Sex: Male
  Weight: 2.2 kg

DRUGS (1)
  1. CANDESARTAN [Suspect]
     Route: 064

REACTIONS (9)
  - PERSISTENT FOETAL CIRCULATION [None]
  - PULMONARY HYPOPLASIA [None]
  - PREMATURE BABY [None]
  - KIDNEY ENLARGEMENT [None]
  - HYPERTENSION [None]
  - HYPOTONIA [None]
  - RENAL FAILURE [None]
  - HAND DEFORMITY [None]
  - MICROCEPHALY [None]
